FAERS Safety Report 23868108 (Version 1)
Quarter: 2024Q2

REPORT INFORMATION
  Report Type: Spontaneous
  Country: CN (occurrence: CN)
  Receive Date: 20240517
  Receipt Date: 20240517
  Transmission Date: 20240716
  Serious: Yes (Hospitalization, Other)
  Sender: FDA-Public Use
  Company Number: CN-SENTISSAG-2024SAGLIT-00016

PATIENT
  Sex: Female

DRUGS (3)
  1. BROMFENAC OPHTHALMIC SOLUTION [Suspect]
     Active Substance: BROMFENAC SODIUM
     Indication: Postoperative care
  2. ALBUMIN BOVINE [Suspect]
     Active Substance: ALBUMIN BOVINE
     Indication: Product used for unknown indication
  3. DEXAMETHASONE\TOBRAMYCIN [Concomitant]
     Active Substance: DEXAMETHASONE\TOBRAMYCIN
     Indication: Product used for unknown indication

REACTIONS (1)
  - Toxic epidermal necrolysis [Recovered/Resolved]
